FAERS Safety Report 16056017 (Version 1)
Quarter: 2019Q2

REPORT INFORMATION
  Report Type: Spontaneous
  Country: US (occurrence: US)
  Receive Date: 20190308
  Receipt Date: 20190308
  Transmission Date: 20190711
  Serious: Yes (Other)
  Sender: FDA-Public Use
  Company Number: None

PATIENT
  Age: 70 Year
  Sex: Female

DRUGS (8)
  1. LEVOTHYROXINE 0.075 MG [Concomitant]
  2. MONTELUKAST 10 MG [Concomitant]
     Active Substance: MONTELUKAST SODIUM
  3. WIXELA INHUB [Suspect]
     Active Substance: FLUTICASONE PROPIONATE\SALMETEROL XINAFOATE
     Indication: ASTHMA
     Route: 048
     Dates: start: 20190301, end: 20190305
  4. LOSARTAN/HCTZ 50/12.5 [Concomitant]
  5. ESCITALOPRAM 20 MG [Concomitant]
     Active Substance: ESCITALOPRAM OXALATE
  6. AMOXICLLIN 500 MG [Concomitant]
     Dates: start: 20190305
  7. PANTOPRAZOLE 40 MG [Concomitant]
     Active Substance: PANTOPRAZOLE SODIUM
  8. ATORVASTATIN 20 MG [Concomitant]
     Active Substance: ATORVASTATIN

REACTIONS (4)
  - Product substitution issue [None]
  - Oral infection [None]
  - Device related infection [None]
  - Therapeutic response decreased [None]

NARRATIVE: CASE EVENT DATE: 20190305
